FAERS Safety Report 16690111 (Version 1)
Quarter: 2019Q3

REPORT INFORMATION
  Report Type: Report from Study
  Country: US (occurrence: US)
  Receive Date: 20190809
  Receipt Date: 20190809
  Transmission Date: 20191004
  Serious: Yes (Hospitalization)
  Sender: FDA-Public Use
  Company Number: US-BAUSCH-BL-2019-022509

PATIENT
  Age: 15 Year
  Sex: Female

DRUGS (2)
  1. TETRABENAZINE. [Suspect]
     Active Substance: TETRABENAZINE
     Indication: CHOREA
     Route: 048
     Dates: start: 20170413
  2. TETRABENAZINE. [Suspect]
     Active Substance: TETRABENAZINE
     Indication: PRODUCT USE IN UNAPPROVED INDICATION

REACTIONS (4)
  - Product administration error [Unknown]
  - Product dose omission [Unknown]
  - Leukaemia [Unknown]
  - Product use in unapproved indication [Unknown]

NARRATIVE: CASE EVENT DATE: 20170413
